FAERS Safety Report 9838445 (Version 1)
Quarter: 2014Q1

REPORT INFORMATION
  Report Type: Spontaneous
  Country: US (occurrence: US)
  Receive Date: 20140123
  Receipt Date: 20140123
  Transmission Date: 20141002
  Serious: Yes (Other)
  Sender: FDA-Public Use
  Company Number: GXBR2014US000522

PATIENT
  Sex: Female

DRUGS (2)
  1. HALOPERIDOL TABLETS USP [Suspect]
     Indication: BIPOLAR DISORDER
     Dosage: 5 MG, BID
     Route: 048
     Dates: end: 201308
  2. HALOPERIDOL TABLETS USP [Suspect]
     Indication: DEPRESSION

REACTIONS (7)
  - Pituitary tumour [Not Recovered/Not Resolved]
  - Headache [Not Recovered/Not Resolved]
  - Blood prolactin increased [Recovered/Resolved]
  - Amenorrhoea [Recovered/Resolved]
  - Galactorrhoea [Recovered/Resolved]
  - Maternal exposure during pregnancy [Recovered/Resolved]
  - Normal newborn [Recovered/Resolved]
